FAERS Safety Report 9393700 (Version 2)
Quarter: 2013Q3

REPORT INFORMATION
  Report Type: Spontaneous
  Country: DE (occurrence: DE)
  Receive Date: 20130710
  Receipt Date: 20130729
  Transmission Date: 20140515
  Serious: Yes (Hospitalization, Other)
  Sender: FDA-Public Use
  Company Number: DE-009507513-1307DEU003398

PATIENT
  Age: 73 Year
  Sex: Male

DRUGS (8)
  1. INTRONA [Suspect]
     Indication: MALIGNANT MELANOMA
     Dosage: 5 DAYS A WEEK
     Route: 042
     Dates: start: 20130626, end: 201306
  2. HYDROCHLOROTHIAZIDE [Concomitant]
     Dosage: 12.5 ONCE DAILY
  3. VALSARTAN [Concomitant]
     Dosage: 320 ONCE DAILY
  4. SIMVAHEXAL [Concomitant]
     Dosage: 40 ONCE DAILY
  5. ACETAMINOPHEN [Concomitant]
     Dosage: 2-2-2
     Route: 048
  6. L-THYROXIN [Concomitant]
     Dosage: 1/2
  7. PANTAZOL [Concomitant]
     Dosage: 20 BID
  8. BERLOSIN [Concomitant]
     Route: 042

REACTIONS (1)
  - Epilepsy [Recovered/Resolved]
